FAERS Safety Report 18908091 (Version 3)
Quarter: 2021Q2

REPORT INFORMATION
  Report Type: Spontaneous
  Country: US (occurrence: US)
  Receive Date: 20210218
  Receipt Date: 20210512
  Transmission Date: 20210717
  Serious: Yes (Other)
  Sender: FDA-Public Use
  Company Number: US-CELGENEUS-USA-20210203224

PATIENT
  Sex: Male
  Weight: 122.58 kg

DRUGS (2)
  1. THALOMID [Suspect]
     Active Substance: THALIDOMIDE
     Indication: MYELOFIBROSIS
     Dosage: 100 MILLIGRAM
     Route: 048
     Dates: start: 201912
  2. THALOMID [Suspect]
     Active Substance: THALIDOMIDE
     Indication: OFF LABEL USE

REACTIONS (6)
  - Neuropathy peripheral [Not Recovered/Not Resolved]
  - Hypoaesthesia [Not Recovered/Not Resolved]
  - Muscle spasms [Not Recovered/Not Resolved]
  - Gout [Not Recovered/Not Resolved]
  - Peripheral swelling [Not Recovered/Not Resolved]
  - Fatigue [Not Recovered/Not Resolved]
